FAERS Safety Report 11330297 (Version 16)
Quarter: 2017Q3

REPORT INFORMATION
  Report Type: Report from Study
  Country: LB (occurrence: LB)
  Receive Date: 20150803
  Receipt Date: 20170724
  Transmission Date: 20171127
  Serious: Yes (Hospitalization)
  Sender: FDA-Public Use
  Company Number: PHHY2012LB052075

PATIENT
  Age: 43 Year
  Sex: Female
  Weight: 60 kg

DRUGS (15)
  1. GLIVEC [Suspect]
     Active Substance: IMATINIB MESYLATE
     Dosage: 200 MG, Q12H (400 MG QD)
     Route: 048
     Dates: start: 201405
  2. CIPRODAR [Concomitant]
     Indication: PRODUCT USED FOR UNKNOWN INDICATION
     Dosage: 1 DF, Q12H
     Route: 048
  3. ADVIL [Concomitant]
     Active Substance: IBUPROFEN
     Indication: PRODUCT USED FOR UNKNOWN INDICATION
     Route: 065
  4. AUGMENTIN [Concomitant]
     Active Substance: AMOXICILLIN\CLAVULANATE POTASSIUM
     Indication: PRODUCT USED FOR UNKNOWN INDICATION
     Dosage: 1 DF, QD
     Route: 048
     Dates: start: 20130129
  5. MEGAVIX [Concomitant]
     Active Substance: TETRAZEPAM
     Indication: PRODUCT USED FOR UNKNOWN INDICATION
     Route: 048
  6. GASTRISEC [Concomitant]
     Indication: PRODUCT USED FOR UNKNOWN INDICATION
     Dosage: 1 DF, QD
     Route: 048
     Dates: start: 201607
  7. PANADOL [Concomitant]
     Active Substance: ACETAMINOPHEN
     Indication: PRODUCT USED FOR UNKNOWN INDICATION
     Dosage: UNK, QD
     Route: 048
  8. DEANXIT [Concomitant]
     Active Substance: FLUPENTIXOL DIHYDROCHLORIDE\MELITRACEN HYDROCHLORIDE
     Indication: PRODUCT USED FOR UNKNOWN INDICATION
     Route: 048
     Dates: start: 201607
  9. FERMENTOL [Concomitant]
     Indication: PRODUCT USED FOR UNKNOWN INDICATION
     Route: 048
  10. CORTANCYL [Suspect]
     Active Substance: PREDNISONE
     Indication: INFECTION
     Route: 048
     Dates: start: 201607
  11. GLIVEC [Suspect]
     Active Substance: IMATINIB MESYLATE
     Indication: CHRONIC MYELOID LEUKAEMIA
     Dosage: 300 MG, Q12H
     Route: 048
     Dates: start: 200505, end: 201405
  12. PRIMPERAN [Concomitant]
     Active Substance: METOCLOPRAMIDE HYDROCHLORIDE
     Indication: PRODUCT USED FOR UNKNOWN INDICATION
     Route: 048
  13. CLARITINE [Concomitant]
     Active Substance: LORATADINE
     Indication: PRODUCT USED FOR UNKNOWN INDICATION
     Dosage: 1 DF, QD
     Route: 048
     Dates: start: 201607
  14. PARIET [Concomitant]
     Active Substance: RABEPRAZOLE SODIUM
     Indication: PRODUCT USED FOR UNKNOWN INDICATION
     Dosage: 1 DF, QD
     Route: 048
  15. PROSPAN [Concomitant]
     Active Substance: IVY EXTRACT
     Indication: PRODUCT USED FOR UNKNOWN INDICATION
     Dosage: 1 TSP, Q8H
     Route: 048
     Dates: start: 20130129

REACTIONS (49)
  - Chills [Unknown]
  - Swelling [Recovered/Resolved]
  - Irritable bowel syndrome [Unknown]
  - Infection [Unknown]
  - Nausea [Recovered/Resolved]
  - Weight decreased [Recovering/Resolving]
  - Ovarian cyst [Unknown]
  - Vomiting [Recovered/Resolved]
  - Benign neoplasm of thyroid gland [Not Recovered/Not Resolved]
  - Gastroenteritis [Unknown]
  - Stress [Unknown]
  - Abdominal pain [Recovered/Resolved]
  - Neck pain [Unknown]
  - Pyrexia [Recovered/Resolved]
  - Rectal haemorrhage [Recovering/Resolving]
  - Anaemia [Recovering/Resolving]
  - Haemorrhoids [Recovering/Resolving]
  - Vitamin B12 decreased [Not Recovered/Not Resolved]
  - Abdominal pain [Recovering/Resolving]
  - Insomnia [Unknown]
  - Anxiety [Not Recovered/Not Resolved]
  - Fatigue [Recovering/Resolving]
  - Abdominal distension [Recovered/Resolved]
  - Oropharyngeal pain [Unknown]
  - Secretion discharge [Unknown]
  - Menstrual disorder [Recovering/Resolving]
  - Ear pain [Unknown]
  - Ear infection [Recovering/Resolving]
  - Abdominal pain upper [Recovering/Resolving]
  - Nausea [Not Recovered/Not Resolved]
  - Pelvic pain [Unknown]
  - Dizziness [Recovering/Resolving]
  - Tremor [Not Recovered/Not Resolved]
  - Hypertension [Unknown]
  - Abdominal distension [Recovering/Resolving]
  - Hypersensitivity [Unknown]
  - Swelling face [Not Recovered/Not Resolved]
  - Influenza [Recovering/Resolving]
  - Diarrhoea [Recovered/Resolved]
  - Ephelides [Not Recovered/Not Resolved]
  - Localised oedema [Unknown]
  - Nocturia [Unknown]
  - Headache [Unknown]
  - Dyspnoea [Unknown]
  - Gastrooesophageal reflux disease [Recovering/Resolving]
  - Urinary tract infection [Not Recovered/Not Resolved]
  - Cough [Unknown]
  - Weight increased [Not Recovered/Not Resolved]
  - Hot flush [Not Recovered/Not Resolved]

NARRATIVE: CASE EVENT DATE: 20121208
